FAERS Safety Report 15129127 (Version 2)
Quarter: 2018Q3

REPORT INFORMATION
  Report Type: Spontaneous
  Country: US (occurrence: US)
  Receive Date: 20180711
  Receipt Date: 20180926
  Transmission Date: 20181010
  Serious: No
  Sender: FDA-Public Use
  Company Number: US-PFIZER INC-2018273945

PATIENT
  Age: 70 Year
  Sex: Female
  Weight: 90.26 kg

DRUGS (2)
  1. LYRICA [Suspect]
     Active Substance: PREGABALIN
     Indication: DIABETIC NEUROPATHY
     Dosage: 100 MG, DAILY
     Route: 048
  2. LYRICA [Suspect]
     Active Substance: PREGABALIN
     Dosage: 75 MG, DAILY
     Route: 048
     Dates: start: 20180306, end: 20180516

REACTIONS (3)
  - Photopsia [Recovered/Resolved]
  - Drug intolerance [Recovered/Resolved]
  - Balance disorder [Recovered/Resolved]
